FAERS Safety Report 13603717 (Version 1)
Quarter: 2017Q2

REPORT INFORMATION
  Report Type: Report from Study
  Country: None (occurrence: DE)
  Receive Date: 20170602
  Receipt Date: 20170602
  Transmission Date: 20170830
  Serious: Yes (Other)
  Sender: FDA-Public Use
  Company Number: DE-ABBVIE-16K-062-1792989-00

PATIENT
  Age: 51 Year
  Sex: Female

DRUGS (10)
  1. NOVALGIN [Concomitant]
     Active Substance: METAMIZOLE SODIUM
     Indication: PRODUCT USED FOR UNKNOWN INDICATION
     Dates: end: 201607
  2. MORPHIUM [Concomitant]
     Indication: PRODUCT USED FOR UNKNOWN INDICATION
     Dates: start: 201607
  3. ACETAMINOPHEN AND CODEINE [Concomitant]
     Active Substance: ACETAMINOPHEN\CODEINE PHOSPHATE
     Indication: PRODUCT USED FOR UNKNOWN INDICATION
  4. THYRONAJOD [Concomitant]
     Active Substance: LEVOTHYROXINE SODIUM\POTASSIUM IODIDE
     Indication: PRODUCT USED FOR UNKNOWN INDICATION
  5. HUMIRA [Suspect]
     Active Substance: ADALIMUMAB
     Indication: COLITIS ULCERATIVE
     Route: 058
  6. IMUREL [Concomitant]
     Active Substance: AZATHIOPRINE SODIUM
     Indication: PRODUCT USED FOR UNKNOWN INDICATION
  7. URBASON [Concomitant]
     Active Substance: METHYLPREDNISOLONE
     Indication: PRODUCT USED FOR UNKNOWN INDICATION
  8. MARCUMAR [Concomitant]
     Active Substance: PHENPROCOUMON
     Indication: PRODUCT USED FOR UNKNOWN INDICATION
  9. HUMIRA [Suspect]
     Active Substance: ADALIMUMAB
     Indication: COLITIS ULCERATIVE
     Route: 058
     Dates: start: 20120106
  10. ASTONIN H [Concomitant]
     Indication: PRODUCT USED FOR UNKNOWN INDICATION
     Dates: end: 201511

REACTIONS (4)
  - Dermatitis [Not Recovered/Not Resolved]
  - Purulence [Not Recovered/Not Resolved]
  - Neoplasm skin [Unknown]
  - Skin haemorrhage [Not Recovered/Not Resolved]

NARRATIVE: CASE EVENT DATE: 201605
